FAERS Safety Report 13384954 (Version 1)
Quarter: 2017Q1

REPORT INFORMATION
  Report Type: Spontaneous
  Country: US (occurrence: US)
  Receive Date: 20170330
  Receipt Date: 20170330
  Transmission Date: 20170429
  Serious: No
  Sender: FDA-Public Use
  Company Number: None

PATIENT
  Age: 75 Year
  Sex: Female
  Weight: 59.02 kg

DRUGS (12)
  1. STIOLTO RESPIMAT [Suspect]
     Active Substance: OLODATEROL HYDROCHLORIDE\TIOTROPIUM BROMIDE MONOHYDRATE
     Route: 055
     Dates: start: 20170214, end: 20170218
  2. MATURE MULTIVITAMIN ONCE A DAY (ALSO HAS LYCOPENE LUTEIN CALCIUM) [Concomitant]
     Active Substance: VITAMINS
  3. NORVASC [Concomitant]
     Active Substance: AMLODIPINE BESYLATE
  4. LOZARTAN [Concomitant]
  5. AMOXIL [Concomitant]
     Active Substance: AMOXICILLIN
  6. CRANBERRY. [Concomitant]
     Active Substance: CRANBERRY
  7. VITAMIN C [Concomitant]
     Active Substance: ASCORBIC ACID
  8. VITAMIN B COMPLEX [Suspect]
     Active Substance: CYANOCOBALAMIN\DEXPANTHENOL\NIACINAMIDE\PYRIDOXINE HYDROCHLORIDE\RIBOFLAVIN 5^-PHOSPHATE SODIUM\THIAMINE HYDROCHLORIDE\VITAMIN B COMPLEX
  9. FISH OIL [Concomitant]
     Active Substance: FISH OIL
  10. POLLOSINE [Concomitant]
  11. CALCIUM + D3 [Concomitant]
     Active Substance: CALCIUM\CHOLECALCIFEROL
  12. CINNAMON. [Concomitant]
     Active Substance: CINNAMON

REACTIONS (2)
  - Tachycardia [None]
  - Motion sickness [None]

NARRATIVE: CASE EVENT DATE: 20170215
